FAERS Safety Report 21404574 (Version 1)
Quarter: 2022Q4

REPORT INFORMATION
  Report Type: Spontaneous
  Country: US (occurrence: US)
  Receive Date: 20221003
  Receipt Date: 20221003
  Transmission Date: 20230113
  Serious: No
  Sender: FDA-Public Use
  Company Number: US-PFIZER INC-202201195778

PATIENT
  Age: 53 Year
  Sex: Female
  Weight: 74.39 kg

DRUGS (4)
  1. PAXLOVID [Suspect]
     Active Substance: NIRMATRELVIR\RITONAVIR
     Indication: COVID-19 treatment
     Dosage: 3 DF, 2X/DAY (300MG, 100MG DOSE PACK, HARD TABLETS, MORNING DOSE AND EVENING DOSE, 3 BLISTER PACKS)
     Dates: start: 20220927
  2. LISINOPRIL [Concomitant]
     Active Substance: LISINOPRIL
     Indication: Hypertension
     Dosage: 20 MG, DAILY (20MG, EVERY DAY)
     Dates: start: 2017
  3. PROGESTERONE [Concomitant]
     Active Substance: PROGESTERONE
     Indication: Menopause
     Dosage: 200 MG, DAILY
  4. ARMOUR THYROID [Concomitant]
     Active Substance: THYROID, PORCINE
     Indication: Hypothyroidism
     Dosage: 60 MG, DAILY
     Dates: start: 2012

REACTIONS (7)
  - Vomiting [Recovered/Resolved]
  - Malaise [Unknown]
  - Diarrhoea [Unknown]
  - Dysgeusia [Recovered/Resolved]
  - Feeling abnormal [Unknown]
  - Nausea [Unknown]
  - Headache [Unknown]

NARRATIVE: CASE EVENT DATE: 20220927
